FAERS Safety Report 5919769-X (Version None)
Quarter: 2008Q4

REPORT INFORMATION
  Report Type: 
  Country: None (occurrence: None)
  Receive Date: 20081015
  Receipt Date: 20081004
  Transmission Date: 20090506
  Serious: Yes (Disabling, Other)
  Sender: FDA-Public Use
  Company Number: US-PFIZER INC-2008072118

PATIENT
  Sex: Male
  Weight: 94.3 kg

DRUGS (11)
  1. LIPITOR [Suspect]
     Indication: BLOOD CHOLESTEROL INCREASED
     Dates: start: 20040401, end: 20050401
  2. LIPITOR [Suspect]
     Indication: HYPERLIPIDAEMIA
  3. GEMFIBROZIL [Suspect]
  4. CRESTOR [Suspect]
  5. NIASPAN [Suspect]
     Indication: HYPERLIPIDAEMIA
     Dates: start: 20050401, end: 20050501
  6. TRICOR [Suspect]
  7. ZETIA [Suspect]
  8. TOPROL-XL [Concomitant]
  9. HYZAAR [Concomitant]
     Dosage: TEXT:50/12.5MG
  10. ACETYLSALICYLIC ACID SRT [Concomitant]
  11. OMEPRAZOLE [Concomitant]

REACTIONS (10)
  - BLOOD CHOLESTEROL INCREASED [None]
  - BLOOD TRIGLYCERIDES INCREASED [None]
  - DYSSTASIA [None]
  - EJECTION FRACTION DECREASED [None]
  - GAIT DISTURBANCE [None]
  - HIGH DENSITY LIPOPROTEIN DECREASED [None]
  - HYPOAESTHESIA [None]
  - MUSCLE SPASMS [None]
  - MUSCULAR WEAKNESS [None]
  - PAIN IN EXTREMITY [None]
